FAERS Safety Report 8061080-8 (Version None)
Quarter: 2012Q1

REPORT INFORMATION
  Report Type: 
  Country: None (occurrence: None)
  Receive Date: 20120120
  Receipt Date: 20110401
  Transmission Date: 20120608
  Serious: No
  Sender: FDA-Public Use
  Company Number: US-ALLERGAN-1104614US

PATIENT
  Age: 71 Year
  Sex: Female

DRUGS (2)
  1. RESTASIS [Suspect]
     Indication: SJOGREN'S SYNDROME
     Dosage: 1 GTT, BID
     Route: 047
  2. IMURAN [Concomitant]
     Dosage: 115 MG, UNK

REACTIONS (1)
  - BURNING SENSATION [None]
